FAERS Safety Report 20087974 (Version 1)
Quarter: 2021Q4

REPORT INFORMATION
  Report Type: Spontaneous
  Country: AU (occurrence: AU)
  Receive Date: 20211118
  Receipt Date: 20211118
  Transmission Date: 20220303
  Serious: Yes (Hospitalization, Other)
  Sender: FDA-Public Use
  Company Number: AU-Merck Healthcare KGaA-9280162

PATIENT
  Age: 86 Year
  Sex: Male

DRUGS (1)
  1. AVELUMAB [Suspect]
     Active Substance: AVELUMAB
     Indication: Metastatic carcinoma of the bladder
     Route: 042
     Dates: start: 202108

REACTIONS (2)
  - Renal impairment [Unknown]
  - Back pain [Unknown]

NARRATIVE: CASE EVENT DATE: 20210101
